FAERS Safety Report 17652400 (Version 1)
Quarter: 2020Q2

REPORT INFORMATION
  Report Type: Report from Study
  Country: US (occurrence: US)
  Receive Date: 20200409
  Receipt Date: 20200409
  Transmission Date: 20200713
  Serious: Yes (Hospitalization, Other)
  Sender: FDA-Public Use
  Company Number: US-MYLANLABS-2020M1034748

PATIENT
  Age: 15 Year
  Sex: Female
  Weight: 42.7 kg

DRUGS (6)
  1. FLONASE                            /00908302/ [Concomitant]
     Active Substance: MOMETASONE FUROATE
     Indication: BRONCHITIS CHRONIC
     Dosage: 1 SPRAY QD EACH NOSTRIL
  2. MUCOMYST [Concomitant]
     Active Substance: ACETYLCYSTEINE
     Indication: CYSTIC FIBROSIS
     Dosage: 4 MILLILITER, BID
     Dates: start: 20180523
  3. CYPROHEPTADINE. [Concomitant]
     Active Substance: CYPROHEPTADINE
     Indication: PANCREATIC FAILURE
     Dosage: 4 MILLIGRAM, QD
     Route: 048
     Dates: start: 20190304
  4. ESCITALOPRAM [Concomitant]
     Active Substance: ESCITALOPRAM OXALATE
     Indication: DEPRESSION
     Dosage: 10 MILLIGRAM, HS
     Route: 048
     Dates: start: 20190127
  5. TOBI PODHALER [Suspect]
     Active Substance: TOBRAMYCIN
     Indication: PRODUCT USED FOR UNKNOWN INDICATION
     Dosage: 300 MILLIGRAM, BID
  6. ZENPEP [Concomitant]
     Active Substance: PANCRELIPASE AMYLASE\PANCRELIPASE LIPASE\PANCRELIPASE PROTEASE
     Indication: PANCREATIC FAILURE
     Dosage: 5 CAP WITH MEALS PO, 2 CAPS WITH SNACKS PO
     Route: 048
     Dates: start: 2020

REACTIONS (1)
  - Bronchitis bacterial [Unknown]

NARRATIVE: CASE EVENT DATE: 20200329
